FAERS Safety Report 7935832-6 (Version None)
Quarter: 2011Q4

REPORT INFORMATION
  Report Type: 
  Country: None (occurrence: None)
  Receive Date: 20111123
  Receipt Date: 20111116
  Transmission Date: 20120403
  Serious: Yes (Hospitalization)
  Sender: FDA-Public Use
  Company Number: FR-JNJFOC-20111107713

PATIENT
  Age: 42 Year
  Sex: Female

DRUGS (8)
  1. FENOFIBRATE [Concomitant]
     Route: 048
  2. REMICADE [Suspect]
     Route: 042
     Dates: end: 20110729
  3. SPECIAFOLDINE [Concomitant]
     Indication: CROHN'S DISEASE
     Route: 048
  4. METHOTREXATE [Suspect]
     Indication: CROHN'S DISEASE
     Route: 048
     Dates: start: 20100301
  5. REMICADE [Suspect]
     Route: 042
     Dates: end: 20101025
  6. PENTASA [Concomitant]
     Indication: CROHN'S DISEASE
     Route: 048
  7. PREDNISONE TAB [Concomitant]
     Indication: CROHN'S DISEASE
     Route: 048
     Dates: start: 20110101
  8. REMICADE [Suspect]
     Indication: MYOSITIS
     Route: 042
     Dates: start: 20080701, end: 20091201

REACTIONS (1)
  - MALIGNANT MELANOMA STAGE I [None]
